FAERS Safety Report 24545443 (Version 1)
Quarter: 2024Q4

REPORT INFORMATION
  Report Type: Spontaneous
  Country: GB (occurrence: None)
  Receive Date: 20241022
  Receipt Date: 20241022
  Transmission Date: 20250114
  Serious: No
  Sender: Public
  Company Number: None

PATIENT
  Age: 60 Year
  Sex: Male

DRUGS (4)
  1. LONAFARNIB [Suspect]
     Active Substance: LONAFARNIB
     Indication: Hepatitis B
  2. LONAFARNIB [Suspect]
     Active Substance: LONAFARNIB
     Indication: Hepatitis D
  3. PEGINTERFERON ALFA-2A [Suspect]
     Active Substance: PEGINTERFERON ALFA-2A
  4. ENTECAVIR [Suspect]
     Active Substance: ENTECAVIR

REACTIONS (16)
  - Leukopenia [None]
  - Neutropenia [None]
  - Lymphopenia [None]
  - Thrombocytopenia [None]
  - Fatigue [None]
  - Aspartate aminotransferase increased [None]
  - Alanine aminotransferase increased [None]
  - Drug ineffective [None]
  - Increased liver stiffness [None]
  - Thromboelastogram [None]
  - Spleen disorder [None]
  - Splenomegaly [None]
  - Ascites [None]
  - Hepatocellular carcinoma [None]
  - Ehlers-Danlos syndrome [None]
  - Varices oesophageal [None]

NARRATIVE: CASE EVENT DATE: 20210101
